FAERS Safety Report 19377579 (Version 4)
Quarter: 2021Q3

REPORT INFORMATION
  Report Type: Report from Study
  Country: US (occurrence: US)
  Receive Date: 20210604
  Receipt Date: 20210706
  Transmission Date: 20211014
  Serious: Yes (Hospitalization)
  Sender: FDA-Public Use
  Company Number: US-PFIZER INC-2021609348

PATIENT
  Age: 35 Year
  Sex: Male
  Weight: 76.7 kg

DRUGS (7)
  1. VINCRISTINE SULFATE. [Suspect]
     Active Substance: VINCRISTINE SULFATE
     Indication: B PRECURSOR TYPE ACUTE LEUKAEMIA
     Dosage: ON DAYS 1, 8, 15, 43,  TOTAL DOSE THIS COURSE: 8 MG
     Route: 042
     Dates: start: 20210322, end: 20210512
  2. CYCLOPHOSPHAMIDE. [Suspect]
     Active Substance: CYCLOPHOSPHAMIDE
     Indication: B PRECURSOR TYPE ACUTE LEUKAEMIA
     Dosage: CYCLIC, TOTAL DOSE AT THIS COURSE: 1860 MG
     Route: 042
     Dates: start: 20210426, end: 20210426
  3. DOXORUBICIN HCL [Suspect]
     Active Substance: DOXORUBICIN HYDROCHLORIDE
     Indication: B PRECURSOR TYPE ACUTE LEUKAEMIA
     Dosage: DAY 1, DAY 8, DAY 15, TOTAL DOSE THIS COURSE: 138.6 MG
     Route: 042
     Dates: start: 20210322, end: 20210405
  4. INOTUZUMAB OZOGAMICIN [Suspect]
     Active Substance: INOTUZUMAB OZOGAMICIN
     Indication: B PRECURSOR TYPE ACUTE LEUKAEMIA
     Dosage: 0.5 MG/M2/DAY, CYCLIC, ON DAY 1, 8 AND 15 OF A 28?DAY CYCLE
     Route: 042
     Dates: start: 20200805, end: 20200916
  5. METHOTREXATE SODIUM. [Suspect]
     Active Substance: METHOTREXATE SODIUM
     Indication: B PRECURSOR TYPE ACUTE LEUKAEMIA
     Dosage: ON DAYS 1, 29, AND 36. TOTAL DOSE AT THIS COURSE: 30 MG
     Route: 037
     Dates: start: 20210322, end: 20210426
  6. RITUXIMAB. [Suspect]
     Active Substance: RITUXIMAB
     Indication: B PRECURSOR TYPE ACUTE LEUKAEMIA
     Dosage: ON DAYS 1 AND 8, TOTAL DOSE AT THIS COURSE: 1380 MG
     Route: 042
     Dates: start: 20210322, end: 20210329
  7. CYTARABINE. [Suspect]
     Active Substance: CYTARABINE
     Indication: B PRECURSOR TYPE ACUTE LEUKAEMIA
     Dosage: DAY 29?32, DAY 36?39, TOTAL DOSE  THIS COURSE: 1120 MG
     Dates: start: 20210426, end: 20210506

REACTIONS (1)
  - Febrile neutropenia [Not Recovered/Not Resolved]

NARRATIVE: CASE EVENT DATE: 20210510
